FAERS Safety Report 19933847 (Version 2)
Quarter: 2022Q2

REPORT INFORMATION
  Report Type: Report from Study
  Country: PH (occurrence: PH)
  Receive Date: 20211008
  Receipt Date: 20220615
  Transmission Date: 20220721
  Serious: Yes (Death)
  Sender: FDA-Public Use
  Company Number: PH-NOVARTISPH-NVSC2021PH230064

PATIENT
  Sex: Female

DRUGS (2)
  1. RIBOCICLIB [Suspect]
     Active Substance: RIBOCICLIB
     Indication: Hormone receptor positive HER2 negative breast cancer
     Dosage: UNK
     Route: 065
  2. FEMARA [Suspect]
     Active Substance: LETROZOLE
     Indication: Hormone receptor positive HER2 negative breast cancer
     Dosage: UNK
     Route: 065

REACTIONS (1)
  - Breast cancer stage IV [Fatal]
